FAERS Safety Report 13617806 (Version 1)
Quarter: 2017Q2

REPORT INFORMATION
  Report Type: Spontaneous
  Country: US (occurrence: US)
  Receive Date: 20170606
  Receipt Date: 20170606
  Transmission Date: 20170830
  Serious: No
  Sender: FDA-Public Use
  Company Number: US-ELI_LILLY_AND_COMPANY-US201705004176

PATIENT
  Age: 51 Year
  Sex: Male

DRUGS (1)
  1. BASAGLAR [Suspect]
     Active Substance: INSULIN GLARGINE
     Indication: TYPE 1 DIABETES MELLITUS
     Dosage: 35 U, DAILY
     Route: 058
     Dates: start: 20170430

REACTIONS (1)
  - Headache [Not Recovered/Not Resolved]

NARRATIVE: CASE EVENT DATE: 20170501
